FAERS Safety Report 8214661-2 (Version None)
Quarter: 2012Q1

REPORT INFORMATION
  Report Type: 
  Country: None (occurrence: None)
  Receive Date: 20120316
  Receipt Date: 20120313
  Transmission Date: 20120608
  Serious: Yes (Hospitalization)
  Sender: FDA-Public Use
  Company Number: IT-SANOFI-AVENTIS-2012SA003931

PATIENT
  Age: 61 Year
  Sex: Female

DRUGS (5)
  1. ELOXATIN [Suspect]
     Route: 041
     Dates: start: 20111014, end: 20111014
  2. FUROSEMIDE [Concomitant]
     Route: 048
  3. ALLOPURINOL [Concomitant]
     Route: 048
  4. ELOXATIN [Suspect]
     Route: 041
     Dates: start: 20110502, end: 20110502
  5. PANTOPRAZOLE [Concomitant]
     Route: 048

REACTIONS (4)
  - PAIN [None]
  - ERYTHEMA [None]
  - HYPERAEMIA [None]
  - OFF LABEL USE [None]
